FAERS Safety Report 8892681 (Version 1)
Quarter: 2012Q4

REPORT INFORMATION
  Report Type: 
  Country: US (occurrence: US)
  Receive Date: 20121107
  Receipt Date: 20121107
  Transmission Date: 20130627
  Serious: No
  Sender: FDA-Public Use
  Company Number: US-AMGEN-USASP2011061372

PATIENT
  Age: 81 Year
  Weight: 81.63 kg

DRUGS (7)
  1. ENBREL [Suspect]
     Indication: PRODUCT USED FOR UNKNOWN INDICATION
     Dosage: 50 mg, qwk
     Route: 058
  2. ZOLOFT [Concomitant]
     Dosage: 25 mg, UNK
  3. PREDNISONE [Concomitant]
     Dosage: 1 mg, UNK
  4. TRAZODONE [Concomitant]
     Dosage: 50 UNK, UNK
  5. ADVIL [Concomitant]
     Dosage: 200 mg, UNK
  6. OCUVITE [Concomitant]
  7. CALCIUM [Concomitant]
     Dosage: 500 mg, UNK

REACTIONS (3)
  - Rhinorrhoea [Unknown]
  - Cough [Unknown]
  - Nasopharyngitis [Unknown]
